FAERS Safety Report 20055618 (Version 3)
Quarter: 2021Q4

REPORT INFORMATION
  Report Type: Report from Study
  Country: CN (occurrence: CN)
  Receive Date: 20211110
  Receipt Date: 20211220
  Transmission Date: 20220303
  Serious: Yes (Hospitalization)
  Sender: FDA-Public Use
  Company Number: CN-BoehringerIngelheim-2021-BI-123967

PATIENT
  Age: 63 Year
  Sex: Male
  Weight: 60.7 kg

DRUGS (5)
  1. TIOTROPIUM BROMIDE [Suspect]
     Active Substance: TIOTROPIUM BROMIDE
     Indication: Chronic obstructive pulmonary disease
     Dosage: 2 PUFFS
     Route: 055
     Dates: start: 20210729, end: 20210827
  2. TIOTROPIUM BROMIDE [Suspect]
     Active Substance: TIOTROPIUM BROMIDE
     Route: 055
     Dates: start: 20210828, end: 20210902
  3. METHYLCOBALAMIN [Concomitant]
     Active Substance: METHYLCOBALAMIN
     Indication: Neuropathy peripheral
     Dosage: 2 TABLETS  TID/DAY
     Route: 048
     Dates: start: 201911
  4. ETORICOXIB [Concomitant]
     Active Substance: ETORICOXIB
     Indication: Gout
     Route: 048
     Dates: start: 201911
  5. DIOSMIN [Concomitant]
     Active Substance: DIOSMIN
     Indication: Lymphatic insufficiency
     Route: 048
     Dates: start: 201911

REACTIONS (3)
  - Intervertebral disc protrusion [Recovered/Resolved]
  - Chronic obstructive pulmonary disease [Recovered/Resolved]
  - Chest pain [Not Recovered/Not Resolved]

NARRATIVE: CASE EVENT DATE: 20210816
